FAERS Safety Report 6707010-X (Version None)
Quarter: 2010Q2

REPORT INFORMATION
  Report Type: 
  Country: None (occurrence: None)
  Receive Date: 20100428
  Receipt Date: 20100413
  Transmission Date: 20101027
  Serious: No
  Sender: FDA-Public Use
  Company Number: LIT-10-0030-W

PATIENT

DRUGS (1)
  1. SERTRALINE TABLETS (WOCKHARDT) [Suspect]

REACTIONS (1)
  - RESTLESS LEGS SYNDROME [None]
